FAERS Safety Report 25596357 (Version 2)
Quarter: 2025Q3

REPORT INFORMATION
  Report Type: Spontaneous
  Country: US (occurrence: US)
  Receive Date: 20250723
  Receipt Date: 20250813
  Transmission Date: 20251020
  Serious: Yes (Life-Threatening, Hospitalization)
  Sender: TEVA
  Company Number: US-TEVA-VS-3352325

PATIENT
  Age: 45 Year
  Sex: Male

DRUGS (5)
  1. BACLOFEN [Suspect]
     Active Substance: BACLOFEN
     Indication: Multiple sclerosis
     Route: 048
  2. PIPERACILLIN AND TAZOBACTAM [Concomitant]
     Active Substance: PIPERACILLIN SODIUM\TAZOBACTAM SODIUM
     Indication: Evidence based treatment
     Route: 065
  3. DEXMEDETOMIDINE [Concomitant]
     Active Substance: DEXMEDETOMIDINE
     Indication: Sedation
     Route: 065
  4. AZITHROMYCIN [Concomitant]
     Active Substance: AZITHROMYCIN
     Indication: Evidence based treatment
     Route: 065
  5. BACLOFEN [Suspect]
     Active Substance: BACLOFEN
     Indication: Multiple sclerosis
     Route: 037

REACTIONS (16)
  - Toxicity to various agents [Unknown]
  - Respiratory failure [Unknown]
  - Mental status changes [Recovered/Resolved]
  - Accidental overdose [Unknown]
  - Tachypnoea [Unknown]
  - Paroxysmal sympathetic hyperactivity [Unknown]
  - Vascular occlusion [Unknown]
  - Ventricular tachycardia [Recovered/Resolved]
  - Respiratory acidosis [Unknown]
  - Device malfunction [Unknown]
  - Cardiomyopathy [Unknown]
  - Cardiac arrest [Recovered/Resolved]
  - Hypertension [Unknown]
  - Electrocardiogram QT prolonged [Recovered/Resolved]
  - Bradycardia [Recovered/Resolved]
  - Vasoconstriction [Unknown]
